FAERS Safety Report 7379902-2 (Version None)
Quarter: 2011Q1

REPORT INFORMATION
  Report Type: 
  Country: None (occurrence: None)
  Receive Date: 20110329
  Receipt Date: 20110321
  Transmission Date: 20110831
  Serious: Yes (Hospitalization)
  Sender: FDA-Public Use
  Company Number: US-AMGEN-USASP2011015162

PATIENT
  Age: 22 Year
  Sex: Male

DRUGS (2)
  1. SENSIPAR [Suspect]
     Indication: HYPERPARATHYROIDISM SECONDARY
     Dosage: 60 MG, Q12H
  2. SENSIPAR [Suspect]

REACTIONS (3)
  - MALAISE [None]
  - FLUID OVERLOAD [None]
  - HYPOCALCAEMIA [None]
